FAERS Safety Report 24199123 (Version 1)
Quarter: 2024Q3

REPORT INFORMATION
  Report Type: Spontaneous
  Country: US (occurrence: US)
  Receive Date: 20240812
  Receipt Date: 20240812
  Transmission Date: 20241016
  Serious: No
  Sender: TAKEDA
  Company Number: US-TAKEDA-2024TUS080158

PATIENT
  Sex: Female

DRUGS (2)
  1. MOTEGRITY [Suspect]
     Active Substance: PRUCALOPRIDE SUCCINATE
     Indication: Oesophageal achalasia
     Dosage: 2 MILLIGRAM, QD
     Route: 065
  2. MOTEGRITY [Suspect]
     Active Substance: PRUCALOPRIDE SUCCINATE
     Indication: Impaired gastric emptying

REACTIONS (2)
  - Insurance issue [Unknown]
  - Off label use [Unknown]
